FAERS Safety Report 23172361 (Version 4)
Quarter: 2024Q3

REPORT INFORMATION
  Report Type: Spontaneous
  Country: FR (occurrence: FR)
  Receive Date: 20231110
  Receipt Date: 20240712
  Transmission Date: 20241016
  Serious: Yes (Life-Threatening, Other)
  Sender: MERCK
  Company Number: FR-009507513-2311FRA002408

PATIENT
  Age: 71 Year
  Sex: Female
  Weight: 72 kg

DRUGS (3)
  1. PEMBROLIZUMAB [Suspect]
     Active Substance: PEMBROLIZUMAB
     Indication: Breast cancer
     Dosage: 200 MILLIGRAM, FREQUENCY: 1
     Route: 042
     Dates: start: 20231030, end: 20231030
  2. CARBOPLATIN [Suspect]
     Active Substance: CARBOPLATIN
     Indication: Breast cancer
     Dosage: UNK
     Dates: start: 2023
  3. CARBOPLATIN [Suspect]
     Active Substance: CARBOPLATIN
     Dosage: UNK
     Dates: start: 20231106

REACTIONS (1)
  - Anaphylactic shock [Recovered/Resolved]

NARRATIVE: CASE EVENT DATE: 20231030
